FAERS Safety Report 5358623-1 (Version None)
Quarter: 2007Q2

REPORT INFORMATION
  Report Type: 
  Country: None (occurrence: None)
  Receive Date: 20070601
  Receipt Date: 20070208
  Transmission Date: 20071010
  Serious: No
  Sender: FDA-Public Use
  Company Number: PHEH2007US01799

PATIENT
  Age: 79 Year
  Sex: Female
  Weight: 54.4 kg

DRUGS (4)
  1. ENABLEX [Suspect]
  2. TYLENOL [Suspect]
     Indication: ARTHRITIS
     Dosage: 1300 MG, Q8H
     Dates: start: 20061121
  3. AMLODIPINE [Concomitant]
  4. ASPIRIN [Concomitant]

REACTIONS (1)
  - RASH [None]
